FAERS Safety Report 10500834 (Version 2)
Quarter: 2014Q4

REPORT INFORMATION
  Report Type: Spontaneous
  Country: US (occurrence: US)
  Receive Date: 20141007
  Receipt Date: 20141007
  Transmission Date: 20150528
  Serious: Yes (Other)
  Sender: FDA-Public Use
  Company Number: US-THROMBOGENICS NV-SPO-2014-1007

PATIENT
  Age: 65 Year
  Sex: Female

DRUGS (6)
  1. POVIDINE HERBAL [Concomitant]
     Indication: PRODUCT USED FOR UNKNOWN INDICATION
     Dosage: 19 H, QD
     Route: 061
     Dates: start: 20140709, end: 20140709
  2. SIMVASTATIN. [Concomitant]
     Active Substance: SIMVASTATIN
     Indication: PRODUCT USED FOR UNKNOWN INDICATION
     Dosage: UNK
     Route: 048
  3. LUTEIN-ZEAXANTHIN [Concomitant]
  4. POLYMYXIN [Concomitant]
     Active Substance: POLYMYXIN
     Indication: PRODUCT USED FOR UNKNOWN INDICATION
     Dosage: 19 H, TID
     Route: 061
     Dates: start: 20140709, end: 20140709
  5. LIDOCAINE                          /00033402/ [Concomitant]
     Indication: PRODUCT USED FOR UNKNOWN INDICATION
     Dosage: 19 H, QD
     Route: 061
     Dates: start: 20140709, end: 20140709
  6. JETREA [Suspect]
     Active Substance: OCRIPLASMIN
     Indication: VITREOUS ADHESIONS
     Dosage: 0.125 MG, ONE TIME DOSE
     Route: 031
     Dates: start: 20140707, end: 20140707

REACTIONS (5)
  - Subretinal fluid [Recovered/Resolved]
  - Anterior chamber inflammation [Recovered/Resolved]
  - Visual acuity reduced [Recovering/Resolving]
  - Visual impairment [Not Recovered/Not Resolved]
  - Eye pain [Unknown]

NARRATIVE: CASE EVENT DATE: 20140711
